FAERS Safety Report 15429950 (Version 3)
Quarter: 2018Q4

REPORT INFORMATION
  Report Type: Spontaneous
  Country: US (occurrence: US)
  Receive Date: 20180926
  Receipt Date: 20181005
  Transmission Date: 20190204
  Serious: Yes (Hospitalization, Other)
  Sender: FDA-Public Use
  Company Number: US-UNITED THERAPEUTICS-UNT-2018-015117

PATIENT
  Sex: Female

DRUGS (5)
  1. TYVASO [Suspect]
     Active Substance: TREPROSTINIL
     Indication: PULMONARY ARTERIAL HYPERTENSION
     Dosage: 72 ?G, QID
     Dates: start: 20180424
  2. VELETRI [Suspect]
     Active Substance: EPOPROSTENOL
     Indication: PRODUCT USED FOR UNKNOWN INDICATION
     Dosage: UNK
     Route: 065
     Dates: start: 201809
  3. TYVASO [Suspect]
     Active Substance: TREPROSTINIL
     Dosage: 42 ?G, QID
     Dates: start: 20180920
  4. ADEMPAS [Concomitant]
     Active Substance: RIOCIGUAT
     Indication: PRODUCT USED FOR UNKNOWN INDICATION
     Dosage: 2.5 MG, UNK
     Route: 065
  5. TYVASO [Suspect]
     Active Substance: TREPROSTINIL
     Dosage: 54 ?G, QID

REACTIONS (12)
  - Blood sodium decreased [Unknown]
  - Confusional state [Unknown]
  - Renal disorder [Unknown]
  - Fluid retention [Unknown]
  - Mental status changes [Not Recovered/Not Resolved]
  - Ligament sprain [Unknown]
  - Hepatic function abnormal [Unknown]
  - Off label use [Unknown]
  - Vaginal haemorrhage [Unknown]
  - Dysphagia [Unknown]
  - Condition aggravated [Unknown]
  - Fatigue [Unknown]

NARRATIVE: CASE EVENT DATE: 2018
